FAERS Safety Report 5912703-8 (Version None)
Quarter: 2008Q4

REPORT INFORMATION
  Report Type: 
  Country: None (occurrence: None)
  Receive Date: 20081008
  Receipt Date: 20080929
  Transmission Date: 20090506
  Serious: Yes (Other)
  Sender: FDA-Public Use
  Company Number: ZA-B.I. PHARMACEUTICALS,INC./RIDGEFIELD-2008-BP-15021BP

PATIENT
  Age: 26 Year
  Sex: Female

DRUGS (4)
  1. VIRAMUNE [Suspect]
     Indication: ANTIVIRAL PROPHYLAXIS
     Dosage: 400MG
     Route: 048
     Dates: start: 20080206
  2. STAVUDINE [Suspect]
     Indication: ANTIVIRAL PROPHYLAXIS
     Dosage: 60MG
     Route: 048
  3. LAMIVUDINE [Suspect]
     Indication: ANTIVIRAL PROPHYLAXIS
     Dosage: 300MG
     Route: 048
  4. EFAVIRENZ CAPSULES [Suspect]
     Indication: ANTIVIRAL PROPHYLAXIS
     Dosage: 600MG
     Route: 048

REACTIONS (1)
  - PNEUMONIA BACTERIAL [None]
